FAERS Safety Report 15481359 (Version 1)
Quarter: 2018Q4

REPORT INFORMATION
  Report Type: Spontaneous
  Country: GB (occurrence: GB)
  Receive Date: 20181010
  Receipt Date: 20181010
  Transmission Date: 20190205
  Serious: Yes (Hospitalization)
  Sender: FDA-Public Use
  Company Number: GB-ROCHE-2197036

PATIENT
  Age: 87 Year
  Sex: Female

DRUGS (1)
  1. LUCENTIS [Suspect]
     Active Substance: RANIBIZUMAB
     Indication: RETINAL DISORDER
     Route: 031

REACTIONS (4)
  - Blindness [Recovering/Resolving]
  - Eye pain [Recovering/Resolving]
  - Headache [Recovering/Resolving]
  - Vitreous floaters [Recovering/Resolving]
